FAERS Safety Report 8884745 (Version 1)
Quarter: 2012Q4

REPORT INFORMATION
  Report Type: 
  Country: US (occurrence: US)
  Receive Date: 20121102
  Receipt Date: 20121102
  Transmission Date: 20130627
  Serious: No
  Sender: FDA-Public Use
  Company Number: US-ASTRAZENECA-2011SE35179

PATIENT
  Sex: Male

DRUGS (2)
  1. PRILOSEC [Suspect]
     Route: 048
  2. METAMUCIL [Interacting]
     Route: 048

REACTIONS (4)
  - Drug interaction [Unknown]
  - Dyspnoea [Unknown]
  - Chest pain [Unknown]
  - Abdominal distension [Unknown]
